FAERS Safety Report 6428439-3 (Version None)
Quarter: 2009Q4

REPORT INFORMATION
  Report Type: 
  Country: None (occurrence: None)
  Receive Date: 20091105
  Receipt Date: 20091031
  Transmission Date: 20100525
  Serious: Yes (Death)
  Sender: FDA-Public Use
  Company Number: A0814857A

PATIENT
  Age: 38 Year
  Sex: Female

DRUGS (3)
  1. TYKERB [Suspect]
     Indication: BREAST CANCER
     Dosage: 1250MG PER DAY
     Route: 065
     Dates: start: 20080601, end: 20091001
  2. CAPECITABINE [Suspect]
     Indication: BREAST CANCER
     Dosage: 2000MGM2 CYCLIC
     Dates: start: 20040301, end: 20091001
  3. ZOLEDRONIC ACID [Suspect]
     Indication: BREAST CANCER
     Dosage: 4MG CYCLIC
     Dates: start: 20011201, end: 20090501

REACTIONS (14)
  - ASCITES [None]
  - BONE PAIN [None]
  - DIARRHOEA [None]
  - DISEASE PROGRESSION [None]
  - HEPATIC FAILURE [None]
  - HEPATIC FUNCTION ABNORMAL [None]
  - LIVER DISORDER [None]
  - LUNG DISORDER [None]
  - LYMPHADENOPATHY [None]
  - METASTASES TO LIVER [None]
  - METASTASES TO LUNG [None]
  - METASTASES TO LYMPH NODES [None]
  - OSTEONECROSIS [None]
  - PALMAR-PLANTAR ERYTHRODYSAESTHESIA SYNDROME [None]
